FAERS Safety Report 4646118-X (Version None)
Quarter: 2005Q2

REPORT INFORMATION
  Report Type: 
  Country: None (occurrence: None)
  Receive Date: 20050427
  Receipt Date: 20040722
  Transmission Date: 20051028
  Serious: No
  Sender: FDA-Public Use
  Company Number: US-GLAXOSMITHKLINE-A0519381A

PATIENT
  Age: 70 Year
  Sex: Female

DRUGS (7)
  1. ZOFRAN [Suspect]
     Indication: PROPHYLAXIS OF NAUSEA AND VOMITING
     Dosage: 8MG THREE TIMES PER DAY
     Route: 048
     Dates: start: 20040713
  2. FOSAMAX [Concomitant]
     Route: 065
     Dates: start: 20040507
  3. DEXAMETHASONE [Concomitant]
     Dosage: 4MG THREE TIMES PER DAY
     Route: 048
     Dates: start: 20040630
  4. FERROUS GLUCONATE [Concomitant]
     Dosage: 324MG PER DAY
     Route: 048
     Dates: start: 20040713
  5. PROMETHAZINE [Concomitant]
     Dosage: 25U AS REQUIRED
     Route: 048
     Dates: start: 20040625
  6. IBUPROFEN [Concomitant]
     Dosage: 600MG FOUR TIMES PER DAY
     Route: 048
     Dates: start: 20040625
  7. TAXOL [Concomitant]
     Indication: CHEMOTHERAPY

REACTIONS (1)
  - ARTHRALGIA [None]
